FAERS Safety Report 7422907-3 (Version None)
Quarter: 2011Q2

REPORT INFORMATION
  Report Type: 
  Country: None (occurrence: None)
  Receive Date: 20110419
  Receipt Date: 20110407
  Transmission Date: 20111010
  Serious: Yes (Other)
  Sender: FDA-Public Use
  Company Number: DE-SANOFI-AVENTIS-2011SA013255

PATIENT
  Age: 76 Year
  Sex: Male
  Weight: 92 kg

DRUGS (5)
  1. HYDROCHLOROTHIAZIDE [Concomitant]
     Dosage: DOSAGE: 1-0-0
     Route: 048
  2. MARCUMAR [Concomitant]
     Indication: ATRIAL FIBRILLATION
     Dosage: DOSAGE: ACCORDING TO INR
     Route: 048
  3. MULTAQ [Suspect]
     Indication: ATRIAL FIBRILLATION
     Route: 048
     Dates: start: 20100801, end: 20100907
  4. TAMSULOSIN [Concomitant]
     Dosage: DOSAGE: 1-0-0
     Route: 048
  5. RAMIPRIL [Concomitant]
     Dosage: DOSAGE: 1/2-0-0
     Route: 048

REACTIONS (2)
  - VENTRICULAR ARRHYTHMIA [None]
  - VENTRICULAR TACHYCARDIA [None]
